FAERS Safety Report 9904407 (Version 2)
Quarter: 2014Q4

REPORT INFORMATION
  Report Type: Spontaneous
  Country: US (occurrence: US)
  Receive Date: 20140218
  Receipt Date: 20141007
  Transmission Date: 20150529
  Serious: Yes (Hospitalization, Other)
  Sender: FDA-Public Use
  Company Number: US-SA-2014SA017522

PATIENT
  Age: 50 Year
  Sex: Female
  Weight: 135 kg

DRUGS (3)
  1. ZOLOFT [Concomitant]
     Active Substance: SERTRALINE HYDROCHLORIDE
  2. OPIOIDS [Concomitant]
     Active Substance: UNSPECIFIED INGREDIENT
     Indication: PAIN
  3. FABRAZYME [Suspect]
     Active Substance: AGALSIDASE BETA
     Indication: FABRY^S DISEASE
     Route: 042

REACTIONS (6)
  - Suicidal ideation [Unknown]
  - Drug dose omission [Unknown]
  - Back pain [Unknown]
  - Nasopharyngitis [Unknown]
  - Pain [Unknown]
  - Staphylococcal infection [Unknown]
